FAERS Safety Report 9194775 (Version 1)
Quarter: 2013Q1

REPORT INFORMATION
  Report Type: Spontaneous
  Country: US (occurrence: US)
  Receive Date: 20130328
  Receipt Date: 20130328
  Transmission Date: 20140127
  Serious: No
  Sender: FDA-Public Use
  Company Number: US-ALLERGAN-1213536US

PATIENT
  Age: 56 Year
  Sex: Female

DRUGS (3)
  1. LATISSE 0.03% [Suspect]
     Indication: GROWTH OF EYELASHES
     Dosage: 2 GTT, QHS
     Route: 061
     Dates: start: 20120907
  2. ADVAIR [Concomitant]
     Indication: ASTHMA
     Dosage: UNK UNK, QD
     Route: 048
     Dates: start: 2008
  3. OIL OF OLAY PRO-X RESTORATION CREAM [Concomitant]
     Indication: PRODUCT USED FOR UNKNOWN INDICATION
     Dosage: UNK
     Route: 061

REACTIONS (1)
  - Blepharal pigmentation [Not Recovered/Not Resolved]
